FAERS Safety Report 13177257 (Version 1)
Quarter: 2017Q1

REPORT INFORMATION
  Report Type: Report from Study
  Country: US (occurrence: US)
  Receive Date: 20170201
  Receipt Date: 20170201
  Transmission Date: 20170428
  Serious: Yes (Other)
  Sender: FDA-Public Use
  Company Number: US-IPSEN-CABO-16007560

PATIENT
  Age: 60 Year
  Sex: Male

DRUGS (6)
  1. LEVOTHYROXINE. [Concomitant]
     Active Substance: LEVOTHYROXINE
  2. FAMOTIDINE. [Concomitant]
     Active Substance: FAMOTIDINE
  3. COMETRIQ [Suspect]
     Active Substance: CABOZANTINIB S-MALATE
     Indication: THYROID CANCER
     Dosage: 140 MG, QD
     Route: 048
     Dates: start: 20160903, end: 20161029
  4. SIMVASTATIN. [Concomitant]
     Active Substance: SIMVASTATIN
  5. CALCIUM WITH D3 [Concomitant]
  6. NASACORT [Concomitant]
     Active Substance: TRIAMCINOLONE ACETONIDE

REACTIONS (21)
  - Muscle atrophy [Unknown]
  - Dry mouth [Unknown]
  - Pain in extremity [Unknown]
  - Ageusia [Unknown]
  - Nasal dryness [Unknown]
  - Blood calcium decreased [Unknown]
  - Epistaxis [Recovered/Resolved]
  - Contusion [Unknown]
  - Asthenia [Unknown]
  - Nausea [Recovering/Resolving]
  - Constipation [Unknown]
  - Haemoglobin decreased [Unknown]
  - Hepatic enzyme increased [Unknown]
  - Diarrhoea [Recovering/Resolving]
  - Weight decreased [Unknown]
  - Stomatitis [Unknown]
  - Decreased appetite [Unknown]
  - Dyspepsia [Unknown]
  - Blister [Unknown]
  - White blood cell count decreased [Unknown]
  - Platelet count decreased [Unknown]

NARRATIVE: CASE EVENT DATE: 20161029
